FAERS Safety Report 23872897 (Version 10)
Quarter: 2025Q2

REPORT INFORMATION
  Report Type: Report from Study
  Country: BR (occurrence: BR)
  Receive Date: 20240520
  Receipt Date: 20250404
  Transmission Date: 20250716
  Serious: Yes (Hospitalization, Other)
  Sender: NOVARTIS
  Company Number: BR-002147023-NVSC2023BR135272

PATIENT
  Age: 63 Year
  Sex: Female

DRUGS (16)
  1. KISQALI [Suspect]
     Active Substance: RIBOCICLIB
     Indication: Breast cancer
     Route: 065
  2. KISQALI [Suspect]
     Active Substance: RIBOCICLIB
     Dosage: 3 DOSAGE FORM, QD
     Route: 065
  3. KISQALI [Suspect]
     Active Substance: RIBOCICLIB
     Route: 065
  4. KISQALI [Suspect]
     Active Substance: RIBOCICLIB
     Route: 065
  5. KISQALI [Suspect]
     Active Substance: RIBOCICLIB
     Dosage: 2 DOSAGE FORM, QD (2 TABLETS PER DAY)
     Route: 065
  6. KISQALI [Suspect]
     Active Substance: RIBOCICLIB
     Dosage: 2 DOSAGE FORM, QD
     Route: 065
  7. KISQALI [Suspect]
     Active Substance: RIBOCICLIB
     Route: 065
     Dates: start: 202306
  8. KISQALI [Suspect]
     Active Substance: RIBOCICLIB
     Dosage: 2 DOSAGE FORM, QD
     Route: 065
     Dates: start: 20240506
  9. KISQALI [Suspect]
     Active Substance: RIBOCICLIB
     Dosage: 2 DOSAGE FORM, QD (? 2 TABLETS/ DAY)
     Route: 065
  10. KISQALI [Suspect]
     Active Substance: RIBOCICLIB
     Dosage: 400 MG, QD (2 X 200MG)
     Route: 048
     Dates: start: 20250106
  11. FULVESTRANT [Concomitant]
     Active Substance: FULVESTRANT
     Indication: Product used for unknown indication
     Route: 065
  12. CARBOXYMETHYLCELLULOSE SODIUM [Concomitant]
     Active Substance: CARBOXYMETHYLCELLULOSE SODIUM
     Indication: Eye disorder
     Route: 065
  13. Cetrolac md [Concomitant]
     Indication: Eye disorder
     Route: 065
  14. Cylocort [Concomitant]
     Indication: Eye disorder
     Route: 065
  15. Rapilax [Concomitant]
     Indication: Gastrointestinal disorder
     Route: 065
  16. DEXAMETHASONE [Concomitant]
     Active Substance: DEXAMETHASONE
     Indication: Pruritus
     Route: 065

REACTIONS (51)
  - Dental caries [Recovering/Resolving]
  - Toothache [Recovered/Resolved]
  - Syncope [Recovered/Resolved]
  - Vomiting [Recovered/Resolved]
  - Cataract [Recovered/Resolved]
  - Metastases to bone [Recovering/Resolving]
  - Glaucoma [Recovering/Resolving]
  - Cataract [Unknown]
  - Seizure [Unknown]
  - Visual impairment [Recovered/Resolved with Sequelae]
  - Decreased immune responsiveness [Recovered/Resolved]
  - Gait disturbance [Unknown]
  - Pain [Unknown]
  - Tooth fracture [Recovered/Resolved]
  - Food refusal [Unknown]
  - Urine odour abnormal [Unknown]
  - Liver disorder [Recovered/Resolved]
  - Hair growth abnormal [Not Recovered/Not Resolved]
  - Drug resistance [Unknown]
  - Depression [Unknown]
  - Weight decreased [Not Recovered/Not Resolved]
  - Constipation [Not Recovered/Not Resolved]
  - Asthenia [Unknown]
  - Memory impairment [Unknown]
  - Pruritus [Recovered/Resolved]
  - Arthralgia [Recovering/Resolving]
  - Rib fracture [Unknown]
  - Gastrointestinal disorder [Not Recovered/Not Resolved]
  - Salivary hypersecretion [Recovered/Resolved]
  - Eye inflammation [Not Recovered/Not Resolved]
  - Skin wrinkling [Unknown]
  - Malaise [Not Recovered/Not Resolved]
  - Nausea [Recovered/Resolved]
  - Fatigue [Unknown]
  - Skin discolouration [Not Recovered/Not Resolved]
  - Pruritus [Recovered/Resolved]
  - COVID-19 [Unknown]
  - Neoplasm [Unknown]
  - Aneurysm [Unknown]
  - Dry skin [Recovering/Resolving]
  - Onychoclasis [Not Recovered/Not Resolved]
  - Nail bed disorder [Not Recovered/Not Resolved]
  - Pharyngitis [Not Recovered/Not Resolved]
  - Tooth fracture [Recovering/Resolving]
  - Confusional state [Unknown]
  - Feeling abnormal [Unknown]
  - Inappropriate schedule of product administration [Recovered/Resolved]
  - Ear pain [Recovered/Resolved]
  - Pain in jaw [Recovered/Resolved]
  - Tooth disorder [Unknown]
  - Neoplasm [Unknown]

NARRATIVE: CASE EVENT DATE: 20230701
